FAERS Safety Report 8086618 (Version 4)
Quarter: 2014Q2

REPORT INFORMATION
  Report Type: Spontaneous
  Country: US (occurrence: US)
  Receive Date: 20110811
  Receipt Date: 20140606
  Transmission Date: 20141212
  Serious: Yes (Hospitalization)
  Sender: FDA-Public Use
  Company Number: US-GLAXOSMITHKLINE-A0855344A

PATIENT
  Age: 76 Year
  Sex: Female
  Weight: 80 kg

DRUGS (2)
  1. AVANDIA [Suspect]
     Indication: DIABETES MELLITUS
     Dosage: 4MG TWICE PER DAY
     Route: 048
     Dates: start: 1999, end: 201002
  2. HUMULIN [Concomitant]

REACTIONS (9)
  - Myocardial ischaemia [Not Recovered/Not Resolved]
  - Myocardial infarction [Unknown]
  - Cardiac failure congestive [Unknown]
  - Congestive cardiomyopathy [Unknown]
  - Transient ischaemic attack [Unknown]
  - Pulmonary oedema [Unknown]
  - Pain in extremity [Unknown]
  - Mononeuritis [Unknown]
  - Insomnia [Unknown]
